FAERS Safety Report 24429297 (Version 2)
Quarter: 2025Q2

REPORT INFORMATION
  Report Type: Spontaneous
  Country: JP (occurrence: JP)
  Receive Date: 20241011
  Receipt Date: 20250417
  Transmission Date: 20250716
  Serious: Yes (Hospitalization, Other)
  Sender: GLAXOSMITHKLINE
  Company Number: JP-GSK-JP2024JPN123395

PATIENT

DRUGS (6)
  1. VALTREX [Suspect]
     Active Substance: VALACYCLOVIR HYDROCHLORIDE
     Indication: Herpes zoster
     Dosage: 3000 MG, QD
  2. VALTREX [Suspect]
     Active Substance: VALACYCLOVIR HYDROCHLORIDE
     Indication: Post herpetic neuralgia
  3. ZOVIRAX [Suspect]
     Active Substance: ACYCLOVIR
     Indication: Herpes zoster disseminated
     Dosage: 250 MG, QD
  4. ZOVIRAX [Suspect]
     Active Substance: ACYCLOVIR
     Indication: Post herpetic neuralgia
  5. LOXOPROFEN SODIUM [Suspect]
     Active Substance: LOXOPROFEN SODIUM
     Indication: Post herpetic neuralgia
     Dosage: 180 MG, QD
  6. LOXOPROFEN SODIUM [Suspect]
     Active Substance: LOXOPROFEN SODIUM
     Indication: Herpes zoster

REACTIONS (14)
  - Toxic encephalopathy [Unknown]
  - Herpes zoster [Unknown]
  - Condition aggravated [Unknown]
  - Hypophagia [Unknown]
  - Altered state of consciousness [Recovered/Resolved]
  - Acute kidney injury [Recovered/Resolved]
  - Malnutrition [Unknown]
  - Herpes zoster disseminated [Unknown]
  - Post herpetic neuralgia [Unknown]
  - Pain [Unknown]
  - Somnolence [Unknown]
  - Incorrect product administration duration [Unknown]
  - Product use in unapproved indication [Unknown]
  - Off label use [Unknown]
